FAERS Safety Report 6035894-X (Version None)
Quarter: 2009Q1

REPORT INFORMATION
  Report Type: 
  Country: None (occurrence: None)
  Receive Date: 20090113
  Receipt Date: 20090109
  Transmission Date: 20090719
  Serious: Yes (Hospitalization)
  Sender: FDA-Public Use
  Company Number: A0718181A

PATIENT
  Age: 42 Year
  Sex: Male
  Weight: 77.3 kg

DRUGS (4)
  1. AVANDIA [Suspect]
     Dosage: 4MG PER DAY
     Route: 048
     Dates: start: 20010612, end: 20021031
  2. GLUCOPHAGE [Concomitant]
  3. PRECOSE [Concomitant]
  4. ACETAMINOPHEN [Concomitant]

REACTIONS (2)
  - ACUTE MYOCARDIAL INFARCTION [None]
  - HEART INJURY [None]
